FAERS Safety Report 9253176 (Version 3)
Quarter: 2013Q2

REPORT INFORMATION
  Report Type: Report from Study
  Country: KR (occurrence: KR)
  Receive Date: 20130424
  Receipt Date: 20130514
  Transmission Date: 20140414
  Serious: Yes (Hospitalization)
  Sender: FDA-Public Use
  Company Number: KR-MERCK-1304KOR010633

PATIENT
  Age: 51 Year
  Sex: Male
  Weight: 68.5 kg

DRUGS (11)
  1. VORINOSTAT [Suspect]
     Indication: GASTRIC CANCER
     Dosage: UNK UNK, QD
     Route: 048
     Dates: start: 20130412, end: 20130416
  2. CAPECITABINE [Suspect]
     Indication: GASTRIC CANCER
     Dosage: UNK UNK, BID
     Route: 048
     Dates: start: 20130412, end: 20130416
  3. CISPLATIN [Suspect]
     Indication: GASTRIC CANCER
     Dosage: UNK, QD
     Route: 042
     Dates: start: 20130412, end: 20130412
  4. SODIUM BICARBONATE [Concomitant]
     Indication: PROPHYLAXIS
     Dosage: GARGLE - INTERMITTENT
     Dates: start: 20130320
  5. RANITIDINE [Concomitant]
     Indication: PROPHYLAXIS
     Dosage: 150 MG DAILY
     Dates: start: 20130324, end: 20130403
  6. RANITIDINE [Concomitant]
     Dosage: 150 MG DAILY
     Dates: start: 20130413, end: 20130415
  7. DEXAMETHASONE [Concomitant]
     Indication: PROPHYLAXIS
     Dosage: 16 MG DAILY
     Dates: start: 20130413, end: 20130415
  8. DEXAMETHASONE [Concomitant]
     Dosage: 10 MG DAILY
     Dates: start: 20130412, end: 20130412
  9. APREPITANT [Concomitant]
     Indication: PROPHYLAXIS
     Dosage: 125 MG DAILY
     Dates: start: 20130412
  10. APREPITANT [Concomitant]
     Dosage: 80 MG DAILY
     Dates: start: 20130413, end: 20130414
  11. RAMOSETRON [Concomitant]
     Indication: PROPHYLAXIS
     Dosage: 0.3 MG DAILY
     Dates: start: 20130412, end: 20130412

REACTIONS (1)
  - Hyperglycaemia [Not Recovered/Not Resolved]
